FAERS Safety Report 6258396-4 (Version None)
Quarter: 2009Q3

REPORT INFORMATION
  Report Type: 
  Country: None (occurrence: None)
  Receive Date: 20090702
  Receipt Date: 20090618
  Transmission Date: 20100115
  Serious: No
  Sender: FDA-Public Use
  Company Number: SPI200900203

PATIENT
  Age: 34 Year
  Sex: Female
  Weight: 113.4 kg

DRUGS (2)
  1. AMITIZA [Suspect]
     Indication: CONSTIPATION
     Dosage: 24 MCG, QHS, ORAL, 8 MG, BID
     Route: 048
     Dates: start: 20090501, end: 20090501
  2. NEXIUM [Concomitant]

REACTIONS (2)
  - DYSPNOEA [None]
  - PALPITATIONS [None]
